FAERS Safety Report 9597819 (Version 1)
Quarter: 2013Q4

REPORT INFORMATION
  Report Type: Spontaneous
  Country: US (occurrence: US)
  Receive Date: 20131004
  Receipt Date: 20131004
  Transmission Date: 20140711
  Serious: Yes (Other)
  Sender: FDA-Public Use
  Company Number: US-AMGEN-USASP2013021163

PATIENT
  Age: 39 Year
  Sex: Female
  Weight: 54.42 kg

DRUGS (6)
  1. ENBREL [Suspect]
     Indication: RHEUMATOID ARTHRITIS
     Dosage: 50 MG, QWK
     Route: 058
     Dates: end: 201302
  2. METHOTREXATE [Concomitant]
     Dosage: 2.5 MG, UNK
  3. ZINC [Concomitant]
     Dosage: 30 MG, UNK
  4. VITAMIN C                          /00008001/ [Concomitant]
     Dosage: 500 MG, UNK
  5. MAGNESIUM [Concomitant]
     Dosage: 400 MG, UNK
  6. FOLIC ACID [Concomitant]
     Dosage: UNK

REACTIONS (1)
  - Skin cancer [Unknown]
